FAERS Safety Report 9113715 (Version 1)
Quarter: 2013Q1

REPORT INFORMATION
  Report Type: Spontaneous
  Country: US (occurrence: US)
  Receive Date: 20130208
  Receipt Date: 20130208
  Transmission Date: 20140127
  Serious: Yes (Death, Other)
  Sender: FDA-Public Use
  Company Number: CHPA2013US002559

PATIENT
  Age: 57 Year
  Sex: Female

DRUGS (11)
  1. ACETAMINOPHEN (PARACETAMOL) [Suspect]
     Dosage: UNK, UNK
     Route: 048
  2. IBUPROFEN [Suspect]
     Dosage: UNK, UNK
     Route: 048
  3. ATENOLOL [Suspect]
     Dosage: UNK, UNK
     Route: 048
  4. ACETAMINOPHEN W/HYDROCODONE [Suspect]
     Dosage: UNK, UNK
     Route: 048
  5. CITALOPRAM [Suspect]
     Dosage: UNK, UNK
     Route: 048
  6. OXYCODONE [Suspect]
     Dosage: UNK, UNK
     Route: 048
  7. HYDROMORPHONE [Suspect]
     Dosage: UNK, UNK
     Route: 048
  8. CLONAZEPAM [Suspect]
     Dosage: UNK, UNK
     Route: 048
  9. BROMPHENIRAMINE [Suspect]
     Dosage: UNK, UNK
     Route: 048
  10. CELECOXIB [Suspect]
     Dosage: UNK, UNK
     Route: 048
  11. GABAPENTIN [Suspect]
     Dosage: UNK, UNK
     Route: 048

REACTIONS (2)
  - Completed suicide [Fatal]
  - Cardio-respiratory arrest [Unknown]
